FAERS Safety Report 8611102-8 (Version None)
Quarter: 2012Q3

REPORT INFORMATION
  Report Type: 
  Country: None (occurrence: None)
  Receive Date: 20120808
  Receipt Date: 20120723
  Transmission Date: 20120928
  Serious: Yes (Hospitalization, Other)
  Sender: FDA-Public Use
  Company Number: 2012P1051223

PATIENT
  Age: 31 Year
  Sex: Female

DRUGS (1)
  1. METHIMAZOLE [Suspect]
     Indication: BASEDOW'S DISEASE
     Dates: start: 20081201, end: 20090810

REACTIONS (19)
  - DERMATITIS BULLOUS [None]
  - BLOOD PRESSURE DIASTOLIC INCREASED [None]
  - MUCOSAL EROSION [None]
  - CONJUNCTIVITIS [None]
  - DRUG HYPERSENSITIVITY [None]
  - SYSTEMIC LUPUS ERYTHEMATOSUS [None]
  - PRURITUS [None]
  - MOUTH ULCERATION [None]
  - HAPTOGLOBIN DECREASED [None]
  - DRUG INEFFECTIVE [None]
  - DYSPHONIA [None]
  - HAEMOLYTIC ANAEMIA [None]
  - LUPUS NEPHRITIS [None]
  - LIP SWELLING [None]
  - LARYNGEAL INFLAMMATION [None]
  - RETICULOCYTE PERCENTAGE INCREASED [None]
  - ORAL MUCOSAL BLISTERING [None]
  - HAEMOGLOBIN DECREASED [None]
  - COOMBS TEST POSITIVE [None]
